FAERS Safety Report 16642194 (Version 1)
Quarter: 2019Q3

REPORT INFORMATION
  Report Type: Spontaneous
  Country: CN (occurrence: CN)
  Receive Date: 20190729
  Receipt Date: 20190729
  Transmission Date: 20191004
  Serious: Yes (Other)
  Sender: FDA-Public Use
  Company Number: CN-PFIZER INC-2019317986

PATIENT
  Age: 6 Year
  Sex: Male
  Weight: 27 kg

DRUGS (2)
  1. METHOTREXATE. [Suspect]
     Active Substance: METHOTREXATE
     Indication: CHEMOTHERAPY
     Dosage: 0.5 G, 1X/DAY
     Route: 041
     Dates: start: 20190710, end: 20190710
  2. GLUCOSE [Suspect]
     Active Substance: DEXTROSE
     Indication: VEHICLE SOLUTION USE
     Dosage: 50 ML, 1X/DAY
     Route: 041
     Dates: start: 20190710, end: 20190710

REACTIONS (6)
  - Depressed level of consciousness [Recovering/Resolving]
  - Cyanosis [Recovering/Resolving]
  - Flushing [Recovering/Resolving]
  - Abdominal pain [Recovering/Resolving]
  - Cough [Recovering/Resolving]
  - Blood pressure decreased [Recovering/Resolving]

NARRATIVE: CASE EVENT DATE: 20190710
